FAERS Safety Report 6449758-0 (Version None)
Quarter: 2009Q4

REPORT INFORMATION
  Report Type: 
  Country: None (occurrence: None)
  Receive Date: 20091120
  Receipt Date: 20091117
  Transmission Date: 20100525
  Serious: Yes (Other)
  Sender: FDA-Public Use
  Company Number: IT-SANOFI-AVENTIS-A06200900552

PATIENT
  Age: 52 Year

DRUGS (3)
  1. ELOXATIN [Suspect]
     Route: 041
     Dates: start: 20090427, end: 20090427
  2. ELOXATIN [Suspect]
     Route: 041
     Dates: start: 20090325, end: 20090325
  3. XELODA [Concomitant]
     Route: 048
     Dates: start: 20090325

REACTIONS (1)
  - LARYNGOSPASM [None]
